FAERS Safety Report 14784170 (Version 1)
Quarter: 2018Q2

REPORT INFORMATION
  Report Type: Spontaneous
  Country: US (occurrence: US)
  Receive Date: 20180413
  Receipt Date: 20180413
  Transmission Date: 20180711
  Serious: Yes (Hospitalization)
  Sender: FDA-Public Use
  Company Number: None

PATIENT
  Age: 58 Year
  Sex: Female

DRUGS (9)
  1. NICOTINE TRANSDERMAL SYSTEM [Concomitant]
     Active Substance: NICOTINE
  2. HYDROCHLOROTHIAZIDE. [Concomitant]
     Active Substance: HYDROCHLOROTHIAZIDE
  3. IBRANCE [Suspect]
     Active Substance: PALBOCICLIB
     Indication: NEOPLASM MALIGNANT
     Dosage: 125 MG DAILY FOR 21 DAYS ORAL
     Route: 048
     Dates: start: 20180116
  4. LETROZOLE. [Concomitant]
     Active Substance: LETROZOLE
  5. DIPHENHYDRAMINE. [Concomitant]
     Active Substance: DIPHENHYDRAMINE
  6. PROMETHAZINE SYRUP [Concomitant]
  7. GLIPIZIDE. [Concomitant]
     Active Substance: GLIPIZIDE
  8. RANITIDINE. [Concomitant]
     Active Substance: RANITIDINE
  9. ATIVAN [Concomitant]
     Active Substance: LORAZEPAM

REACTIONS (3)
  - Pneumonia [None]
  - Pain in extremity [None]
  - Pulmonary embolism [None]

NARRATIVE: CASE EVENT DATE: 20180410
